FAERS Safety Report 5311613-7 (Version None)
Quarter: 2007Q1

REPORT INFORMATION
  Report Type: 
  Country: None (occurrence: None)
  Receive Date: 20070201
  Receipt Date: 20061114
  Transmission Date: 20070707
  Serious: No
  Sender: FDA-Public Use
  Company Number: 258611

PATIENT
  Age: 57 Year
  Sex: Male
  Weight: 99.8 kg

DRUGS (6)
  1. LEVEMIR [Suspect]
     Indication: BLOOD INSULIN
     Dosage: SLIDING SCALE, SUBCUTANEOUS
     Route: 058
     Dates: start: 20061101
  2. LEVEMIR [Suspect]
     Indication: INSULIN-REQUIRING TYPE II DIABETES MELLITUS
     Dosage: SLIDING SCALE, SUBCUTANEOUS
     Route: 058
     Dates: start: 20061101
  3. METFORMIN HCL [Concomitant]
  4. AVANDIA (ROSIGLITAZONE MALEATE) CAPSULE [Concomitant]
  5. AMARYL (GLIMEPIRIDE) CAPSULE, 2 MG [Concomitant]
  6. NOVOFINE 30 (NEEDLE) [Concomitant]

REACTIONS (3)
  - BLOOD GLUCOSE INCREASED [None]
  - INJECTION SITE HAEMORRHAGE [None]
  - INJECTION SITE PAPULE [None]
